FAERS Safety Report 5888752-5 (Version None)
Quarter: 2008Q3

REPORT INFORMATION
  Report Type: 
  Country: None (occurrence: None)
  Receive Date: 20080917
  Receipt Date: 20080909
  Transmission Date: 20090109
  Serious: Yes (Death, Hospitalization)
  Sender: FDA-Public Use
  Company Number: 2008US000599

PATIENT
  Age: 61 Year
  Weight: 62.3 kg

DRUGS (2)
  1. AMBISOME [Suspect]
     Indication: CANDIDIASIS
     Dosage: 3 MG/KG, UID/QD/IV DRIP
     Route: 041
     Dates: start: 20071212, end: 20071212
  2. SCOPOLAMINE [Concomitant]

REACTIONS (2)
  - CEREBROVASCULAR ACCIDENT [None]
  - LUNG NEOPLASM MALIGNANT [None]
